FAERS Safety Report 24871526 (Version 5)
Quarter: 2025Q2

REPORT INFORMATION
  Report Type: Spontaneous
  Country: CA (occurrence: CA)
  Receive Date: 20250122
  Receipt Date: 20250627
  Transmission Date: 20250717
  Serious: Yes (Other)
  Sender: CELLTRION
  Company Number: CA-CELLTRION INC.-2025CA001271

PATIENT

DRUGS (4)
  1. STEQEYMA [Suspect]
     Active Substance: USTEKINUMAB-STBA
     Indication: Crohn^s disease
     Route: 042
     Dates: start: 20241119
  2. STEQEYMA [Suspect]
     Active Substance: USTEKINUMAB-STBA
     Route: 042
     Dates: start: 20241115, end: 20241115
  3. METHOTREXATE SODIUM [Concomitant]
     Active Substance: METHOTREXATE SODIUM
  4. PREDNISONE [Concomitant]
     Active Substance: PREDNISONE

REACTIONS (2)
  - Rhinorrhoea [Unknown]
  - Breast cancer [Unknown]

NARRATIVE: CASE EVENT DATE: 20250314
